FAERS Safety Report 17426519 (Version 1)
Quarter: 2020Q1

REPORT INFORMATION
  Report Type: Spontaneous
  Country: DE (occurrence: DE)
  Receive Date: 20200218
  Receipt Date: 20200218
  Transmission Date: 20200409
  Serious: Yes (Other)
  Sender: FDA-Public Use
  Company Number: DE-SUN PHARMACEUTICAL INDUSTRIES LTD-2020RR-237113

PATIENT
  Age: 49 Year
  Sex: Male

DRUGS (3)
  1. SERTRALIN BASICS 50MG FILMTABLETTEN [Suspect]
     Active Substance: SERTRALINE HYDROCHLORIDE
     Indication: PRODUCT USED FOR UNKNOWN INDICATION
     Dosage: 25 MILLIGRAM, UNK
     Route: 048
     Dates: start: 20190228, end: 20190312
  2. SERTRALIN BASICS 50MG FILMTABLETTEN [Suspect]
     Active Substance: SERTRALINE HYDROCHLORIDE
     Dosage: 25 MILLIGRAM, UNK
     Route: 048
     Dates: start: 20190401, end: 20190430
  3. SERTRALIN BASICS 50MG FILMTABLETTEN [Suspect]
     Active Substance: SERTRALINE HYDROCHLORIDE
     Dosage: 50 MILLIGRAM, UNK
     Route: 048
     Dates: start: 20190313, end: 20190401

REACTIONS (11)
  - Heart rate increased [Unknown]
  - Euphoric mood [Unknown]
  - Suicidal ideation [Not Recovered/Not Resolved]
  - Panic reaction [Not Recovered/Not Resolved]
  - Dry mouth [Unknown]
  - Fear [Not Recovered/Not Resolved]
  - Aggression [Not Recovered/Not Resolved]
  - Dyskinesia [Unknown]
  - Seizure [Recovered/Resolved]
  - Depressed level of consciousness [Not Recovered/Not Resolved]
  - Paraesthesia [Not Recovered/Not Resolved]

NARRATIVE: CASE EVENT DATE: 20190430
